FAERS Safety Report 7234285-3 (Version None)
Quarter: 2010Q4

REPORT INFORMATION
  Report Type: 
  Country: None (occurrence: None)
  Receive Date: 20101130
  Receipt Date: 20090730
  Transmission Date: 20110411
  Serious: Yes (Hospitalization)
  Sender: FDA-Public Use
  Company Number: 2008-182080-NL

PATIENT
  Age: 43 Year
  Sex: Female
  Weight: 83 kg

DRUGS (7)
  1. NUVARING [Suspect]
     Indication: CONTRACEPTION
     Dosage: 1 DF;VAG
     Route: 067
     Dates: start: 20040101, end: 20051111
  2. TOPAMAX [Concomitant]
  3. ALTACE [Concomitant]
  4. DIOVAN [Concomitant]
  5. ADDERALL XR 10 [Concomitant]
  6. TOPROL-XL [Concomitant]
  7. CONCERTA [Concomitant]

REACTIONS (2)
  - DEEP VEIN THROMBOSIS [None]
  - PULMONARY EMBOLISM [None]
